FAERS Safety Report 5456565-4 (Version None)
Quarter: 2007Q3

REPORT INFORMATION
  Report Type: 
  Country: None (occurrence: None)
  Receive Date: 20070918
  Receipt Date: 20070228
  Transmission Date: 20080115
  Serious: Yes (Hospitalization, Other)
  Sender: FDA-Public Use
  Company Number: US-ASTRAZENECA-2006UW25304

PATIENT
  Age: 11635 Day
  Sex: Male
  Weight: 83.2 kg

DRUGS (9)
  1. SEROQUEL [Suspect]
     Indication: PSYCHOTIC DISORDER
     Dosage: 100 MG - 400 MG
     Route: 048
     Dates: start: 19990510, end: 20040220
  2. SEROQUEL [Suspect]
     Indication: DEPRESSION
     Dosage: 100 MG - 400 MG
     Route: 048
     Dates: start: 19990510, end: 20040220
  3. SEROQUEL [Suspect]
     Indication: SCHIZOPHRENIA
     Dosage: 100 MG - 400 MG
     Route: 048
     Dates: start: 19990510, end: 20040220
  4. GEODON [Concomitant]
     Dates: start: 20020315
  5. HALDOL [Concomitant]
     Dates: start: 20010101
  6. NAVANE [Concomitant]
     Dates: start: 19961118
  7. RISPERDAL [Concomitant]
     Dates: start: 19960916
  8. THORAZINE [Concomitant]
     Dates: start: 19920101
  9. REMERON [Concomitant]
     Dates: start: 20050101

REACTIONS (3)
  - NEUROLEPTIC MALIGNANT SYNDROME [None]
  - PANCREATITIS [None]
  - TYPE 2 DIABETES MELLITUS [None]
